FAERS Safety Report 8257706-6 (Version None)
Quarter: 2012Q2

REPORT INFORMATION
  Report Type: 
  Country: None (occurrence: None)
  Receive Date: 20120403
  Receipt Date: 20120321
  Transmission Date: 20120825
  Serious: Yes (Other)
  Sender: FDA-Public Use
  Company Number: DE-MYLANLABS-2011S1022691

PATIENT
  Age: 78 Year
  Sex: Female

DRUGS (3)
  1. ENALAPRIL [Suspect]
     Indication: HYPERTENSION
     Dosage: DAILY DOSE: 5 MG MILLGRAM(S) EVERY DAYS
     Route: 048
     Dates: start: 20030101, end: 20080701
  2. DURAGESIC-100 [Suspect]
     Indication: BONE PAIN
     Route: 062
     Dates: start: 20040901, end: 20051001
  3. DIPYRONE TAB [Suspect]
     Indication: BONE PAIN
     Route: 048
     Dates: start: 20050601, end: 20070501

REACTIONS (1)
  - DEMENTIA [None]
